FAERS Safety Report 8685149 (Version 2)
Quarter: 2013Q1

REPORT INFORMATION
  Report Type: Spontaneous
  Country: US (occurrence: US)
  Receive Date: 20120726
  Receipt Date: 20130325
  Transmission Date: 20140127
  Serious: No
  Sender: FDA-Public Use
  Company Number: US-ASTRAZENECA-2011SE48012

PATIENT
  Age: 50 Year
  Sex: Male
  Weight: 76.7 kg

DRUGS (3)
  1. SEROQUEL [Suspect]
     Indication: NERVOUSNESS
     Route: 048
     Dates: start: 2006, end: 20110808
  2. SEROQUEL [Suspect]
     Indication: INSOMNIA
     Route: 048
     Dates: start: 2006, end: 20110808
  3. SEROQUEL [Suspect]
     Indication: DECREASED APPETITE
     Route: 048
     Dates: start: 2006, end: 20110808

REACTIONS (6)
  - Insomnia [Unknown]
  - Decreased appetite [Unknown]
  - Intervertebral disc protrusion [Unknown]
  - Drug withdrawal syndrome [Unknown]
  - Drug dose omission [Unknown]
  - Off label use [Unknown]
